FAERS Safety Report 9249601 (Version 1)
Quarter: 2013Q2

REPORT INFORMATION
  Report Type: Spontaneous
  Country: US (occurrence: US)
  Receive Date: 20130423
  Receipt Date: 20130423
  Transmission Date: 20140414
  Serious: No
  Sender: FDA-Public Use
  Company Number: US-BRISTOL-MYERS SQUIBB COMPANY-17408048

PATIENT
  Age: 66 Year
  Sex: Female

DRUGS (9)
  1. YERVOY [Suspect]
     Dosage: NO OF INF:4TH YERVOY INFUSION
  2. TAMOXIFEN [Concomitant]
  3. ALENDRONATE [Concomitant]
  4. COLACE [Concomitant]
  5. SENNA [Concomitant]
  6. CALTRATE WITH VITAMIN D [Concomitant]
  7. VITAMIN C [Concomitant]
  8. MULTIVITAMIN [Concomitant]
  9. FISH OIL [Concomitant]

REACTIONS (1)
  - Constipation [Unknown]
